FAERS Safety Report 15761929 (Version 2)
Quarter: 2019Q1

REPORT INFORMATION
  Report Type: Spontaneous
  Country: US (occurrence: US)
  Receive Date: 20181226
  Receipt Date: 20190122
  Transmission Date: 20190417
  Serious: Yes (Hospitalization, Other)
  Sender: FDA-Public Use
  Company Number: US-ASTRAZENECA-2018SF68358

PATIENT
  Age: 826 Month
  Sex: Female
  Weight: 60.8 kg

DRUGS (8)
  1. CRESTOR [Suspect]
     Active Substance: ROSUVASTATIN CALCIUM
     Indication: BLOOD CHOLESTEROL INCREASED
     Route: 048
     Dates: start: 20160602, end: 20181110
  2. MAGNESIUM [Concomitant]
     Active Substance: MAGNESIUM
  3. METOPROLOL SUCCINATE. [Suspect]
     Active Substance: METOPROLOL SUCCINATE
     Indication: HYPERTENSION
     Dosage: 25 MG, HALF TABLET, DAILY
     Route: 048
     Dates: start: 201811
  4. CRESTOR [Suspect]
     Active Substance: ROSUVASTATIN CALCIUM
     Indication: BLOOD CHOLESTEROL INCREASED
     Route: 048
  5. ASPIRIN. [Concomitant]
     Active Substance: ASPIRIN
     Dosage: 81.0MG UNKNOWN
  6. VITAMIN D [Concomitant]
     Active Substance: CHOLECALCIFEROL
  7. COQ10 [Concomitant]
     Active Substance: UBIDECARENONE
  8. VITAMIN C [Concomitant]
     Active Substance: ASCORBIC ACID

REACTIONS (11)
  - Pain [Recovered/Resolved]
  - Dizziness [Unknown]
  - Aortic stenosis [Recovered/Resolved]
  - Burning sensation [Not Recovered/Not Resolved]
  - Nervousness [Unknown]
  - Neuropathy peripheral [Unknown]
  - Asthenia [Recovered/Resolved]
  - Blood pressure increased [Unknown]
  - Feeling abnormal [Recovered/Resolved]
  - Feeling jittery [Not Recovered/Not Resolved]
  - Pain in extremity [Recovered/Resolved]

NARRATIVE: CASE EVENT DATE: 201810
